FAERS Safety Report 6781677-2 (Version None)
Quarter: 2010Q2

REPORT INFORMATION
  Report Type: 
  Country: None (occurrence: None)
  Receive Date: 20100617
  Receipt Date: 20100617
  Transmission Date: 20101027
  Serious: Yes (Hospitalization)
  Sender: FDA-Public Use
  Company Number: None

PATIENT
  Age: 81 Year
  Sex: Female
  Weight: 86.1834 kg

DRUGS (1)
  1. FERAHEME [Suspect]
     Dosage: 510MG ONCE IV DRIP
     Route: 041

REACTIONS (4)
  - DYSPNOEA [None]
  - HYPOTENSION [None]
  - PRURITUS [None]
  - RASH [None]
